FAERS Safety Report 5336527-8 (Version None)
Quarter: 2007Q2

REPORT INFORMATION
  Report Type: 
  Country: None (occurrence: None)
  Receive Date: 20070529
  Receipt Date: 20070521
  Transmission Date: 20071010
  Serious: Yes (Hospitalization)
  Sender: FDA-Public Use
  Company Number: IT-BAYER-200712871GDS

PATIENT
  Age: 78 Year
  Sex: Female

DRUGS (7)
  1. CARDIOASPIRIN 100 [Suspect]
     Indication: ANTICOAGULANT THERAPY
     Dosage: TOTAL DAILY DOSE: 100 MG  UNIT DOSE: 100 MG
     Route: 048
     Dates: start: 19920510, end: 20070510
  2. AULIN [Suspect]
     Indication: MYALGIA
     Dosage: TOTAL DAILY DOSE: 200 MG  UNIT DOSE: 100 MG
     Route: 048
     Dates: start: 20070511, end: 20070512
  3. TORADOL [Suspect]
     Indication: MYALGIA
     Dosage: TOTAL DAILY DOSE: 10 MG  UNIT DOSE: 10 MG
     Route: 030
     Dates: start: 20070410, end: 20070512
  4. ISOPTIN [Concomitant]
     Indication: DRUG USE FOR UNKNOWN INDICATION
     Dosage: TOTAL DAILY DOSE: 120 MG  UNIT DOSE: 120 MG
     Route: 048
     Dates: start: 19920510, end: 20070510
  5. VASERETIC [Concomitant]
     Indication: DRUG USE FOR UNKNOWN INDICATION
     Dosage: AS USED: 20+12.5 MG  UNIT DOSE: 32.5 MG
     Route: 048
     Dates: start: 19990510, end: 20070510
  6. NITRO-DUR [Concomitant]
     Indication: DRUG USE FOR UNKNOWN INDICATION
     Dosage: TOTAL DAILY DOSE: 10 MG  UNIT DOSE: 10 MG
     Route: 062
     Dates: start: 19920510, end: 20070510
  7. SPASMEX (FLUOROGLUCINOL+MEGLUCINOL) [Concomitant]
     Indication: DRUG USE FOR UNKNOWN INDICATION
     Dosage: AS USED: 80+80 MG  UNIT DOSE: 160 MG
     Route: 048
     Dates: start: 20070410, end: 20070510

REACTIONS (5)
  - ANAEMIA [None]
  - DUODENAL ULCER [None]
  - GASTRITIS EROSIVE [None]
  - HIATUS HERNIA [None]
  - OESOPHAGITIS [None]
